FAERS Safety Report 22586825 (Version 6)
Quarter: 2023Q4

REPORT INFORMATION
  Report Type: Report from Study
  Country: FR (occurrence: FR)
  Receive Date: 20230611
  Receipt Date: 20231222
  Transmission Date: 20240109
  Serious: Yes (Hospitalization, Disabling, Other)
  Sender: FDA-Public Use
  Company Number: FR-ABBVIE-5283408

PATIENT
  Age: 69 Year
  Sex: Female
  Weight: 76 kg

DRUGS (12)
  1. UPADACITINIB [Suspect]
     Active Substance: UPADACITINIB
     Indication: Rheumatoid arthritis
     Route: 048
     Dates: start: 20221208, end: 20230606
  2. UPADACITINIB [Suspect]
     Active Substance: UPADACITINIB
     Indication: Rheumatoid arthritis
     Route: 048
     Dates: start: 20220614, end: 20221115
  3. UPADACITINIB [Suspect]
     Active Substance: UPADACITINIB
     Indication: Rheumatoid arthritis
     Route: 048
     Dates: start: 20220221, end: 20220608
  4. UPADACITINIB [Suspect]
     Active Substance: UPADACITINIB
     Indication: Rheumatoid arthritis
     Route: 048
     Dates: start: 2023
  5. VALERIAN [Concomitant]
     Active Substance: VALERIAN
     Indication: Fibromyalgia
     Dosage: 2 CAPSULE
     Route: 048
     Dates: start: 20221124
  6. PRAVASTATIN [Concomitant]
     Active Substance: PRAVASTATIN
     Indication: Hypertension
     Route: 048
     Dates: start: 2017
  7. ACETAMINOPHEN [Concomitant]
     Active Substance: ACETAMINOPHEN
     Indication: Rheumatoid arthritis
     Dosage: FREQUENCY AS NEEDED
     Route: 048
     Dates: start: 20220221
  8. ACETAMINOPHEN\CODEINE PHOSPHATE [Concomitant]
     Active Substance: ACETAMINOPHEN\CODEINE PHOSPHATE
     Indication: Fibromyalgia
     Dosage: 500/30 MG DAILY
     Route: 048
     Dates: start: 20221124
  9. DIAZEPAM [Concomitant]
     Active Substance: DIAZEPAM
     Indication: Fibromyalgia
     Route: 048
     Dates: start: 20221124
  10. DULOXETINE HYDROCHLORIDE [Concomitant]
     Active Substance: DULOXETINE HYDROCHLORIDE
     Indication: Fibromyalgia
     Route: 048
     Dates: start: 2017
  11. PANTOPRAZOLE [Concomitant]
     Active Substance: PANTOPRAZOLE
     Indication: Prophylaxis
     Route: 048
     Dates: start: 20220221
  12. IBUPROFEN [Concomitant]
     Active Substance: IBUPROFEN
     Indication: Prophylaxis
     Dosage: TIME INTERVAL: 0.33333333 DAYS
     Route: 003
     Dates: start: 20220523

REACTIONS (1)
  - Intervertebral disc protrusion [Not Recovered/Not Resolved]

NARRATIVE: CASE EVENT DATE: 20230523
